FAERS Safety Report 5823776-5 (Version None)
Quarter: 2008Q3

REPORT INFORMATION
  Report Type: 
  Country: None (occurrence: None)
  Receive Date: 20080725
  Receipt Date: 20080717
  Transmission Date: 20090109
  Serious: Yes (Life-Threatening)
  Sender: FDA-Public Use
  Company Number: JP-MERCK-0807USA04132

PATIENT
  Age: 60 Year
  Sex: Male

DRUGS (2)
  1. PEPCID [Suspect]
     Route: 048
     Dates: start: 20060615, end: 20080416
  2. PROGRAF [Suspect]
     Route: 048
     Dates: start: 20061117, end: 20080416

REACTIONS (1)
  - ALTERED STATE OF CONSCIOUSNESS [None]
